FAERS Safety Report 5248444-2 (Version None)
Quarter: 2007Q1

REPORT INFORMATION
  Report Type: 
  Country: None (occurrence: None)
  Receive Date: 20070227
  Receipt Date: 20070221
  Transmission Date: 20070707
  Serious: Yes (Disabling)
  Sender: FDA-Public Use
  Company Number: US-MERCK-0609USA01221

PATIENT
  Age: 45 Year
  Sex: Male

DRUGS (2)
  1. FOSAMAX [Suspect]
     Indication: OSTEOPOROSIS
     Route: 048
     Dates: start: 20040908, end: 20060404
  2. FOSAMAX [Suspect]
     Indication: RHEUMATOID ARTHRITIS
     Route: 048
     Dates: start: 20040908, end: 20060404

REACTIONS (6)
  - ANXIETY [None]
  - ARTHROPATHY [None]
  - BACK DISORDER [None]
  - DEPRESSION [None]
  - OSTEONECROSIS [None]
  - TOOTH FRACTURE [None]
